FAERS Safety Report 5631681-2 (Version None)
Quarter: 2008Q1

REPORT INFORMATION
  Report Type: 
  Country: None (occurrence: None)
  Receive Date: 20080207
  Receipt Date: 20080129
  Transmission Date: 20080703
  Serious: Yes (Disabling)
  Sender: FDA-Public Use
  Company Number: AEUSA200700223

PATIENT
  Age: 50 Year
  Sex: Female
  Weight: 65.7716 kg

DRUGS (3)
  1. GAMASTAN [Suspect]
     Indication: WHITE BLOOD CELL COUNT DECREASED
     Dosage: 2 ML; Q6W; IM
     Route: 030
     Dates: start: 20070830
  2. ASPIRIN [Concomitant]
  3. XANAX [Concomitant]

REACTIONS (6)
  - ABASIA [None]
  - ASTHENIA [None]
  - BALANCE DISORDER [None]
  - CHRONIC FATIGUE SYNDROME [None]
  - DISEASE RECURRENCE [None]
  - DIZZINESS [None]
